FAERS Safety Report 24541455 (Version 1)
Quarter: 2024Q4

REPORT INFORMATION
  Report Type: Spontaneous
  Country: US (occurrence: US)
  Receive Date: 20241023
  Receipt Date: 20241023
  Transmission Date: 20250114
  Serious: No
  Sender: PFIZER
  Company Number: US-PFIZER INC-PV202400136795

PATIENT

DRUGS (1)
  1. METHYLPREDNISOLONE [Suspect]
     Active Substance: METHYLPREDNISOLONE
     Indication: Sinusitis

REACTIONS (5)
  - Mania [Unknown]
  - Insomnia [Unknown]
  - Weight increased [Unknown]
  - Off label use [Unknown]
  - Drug effective for unapproved indication [Unknown]
